FAERS Safety Report 14543511 (Version 1)
Quarter: 2018Q1

REPORT INFORMATION
  Report Type: Spontaneous
  Country: CA (occurrence: CA)
  Receive Date: 20180216
  Receipt Date: 20180216
  Transmission Date: 20180509
  Serious: Yes (Hospitalization, Other)
  Sender: FDA-Public Use
  Company Number: CA-TEVA-2018-CA-857838

PATIENT
  Age: 4 Year
  Sex: Female
  Weight: 19 kg

DRUGS (3)
  1. ACYCLOVIR SODIUM INJECTION [Suspect]
     Active Substance: ACYCLOVIR SODIUM
     Indication: ENCEPHALITIS
     Dosage: 60 MG/KG DAILY; SOLUTION INTRAVENOUS
     Route: 042
  2. CEFTRIAXONE SODIUM FOR INJECTION BP [Concomitant]
     Active Substance: CEFTRIAXONE SODIUM
  3. VANCOMYCIN [Suspect]
     Active Substance: VANCOMYCIN
     Indication: MENINGITIS
     Dosage: 60 MG/KG DAILY;
     Route: 042

REACTIONS (1)
  - Acute kidney injury [Recovered/Resolved]
